FAERS Safety Report 16861134 (Version 1)
Quarter: 2019Q3

REPORT INFORMATION
  Report Type: Spontaneous
  Country: DE (occurrence: DE)
  Receive Date: 20190927
  Receipt Date: 20190927
  Transmission Date: 20191005
  Serious: Yes (Other)
  Sender: FDA-Public Use
  Company Number: DE-TEVA-2019-DE-1112376

PATIENT
  Age: 6 Decade
  Sex: Male

DRUGS (1)
  1. GABAPENTIN-TEVA 600 MG [Suspect]
     Active Substance: GABAPENTIN
     Indication: EPILEPSY
     Dosage: INTAKE FOR SOME TIME (NOT FURTHER SPECIFIED)

REACTIONS (3)
  - Product packaging issue [Unknown]
  - Seizure [Not Recovered/Not Resolved]
  - Therapeutic product effect decreased [Unknown]
